FAERS Safety Report 14160487 (Version 1)
Quarter: 2017Q4

REPORT INFORMATION
  Report Type: Spontaneous
  Country: US (occurrence: US)
  Receive Date: 20171103
  Receipt Date: 20171103
  Transmission Date: 20180321
  Serious: No
  Sender: FDA-Public Use
  Company Number: None

PATIENT
  Age: 61 Year
  Sex: Female
  Weight: 87.8 kg

DRUGS (16)
  1. CEFAZOLIN [Concomitant]
     Active Substance: CEFAZOLIN
  2. POTASSIUM CHLORIDE. [Concomitant]
     Active Substance: POTASSIUM CHLORIDE
  3. BUMETANIDE. [Concomitant]
     Active Substance: BUMETANIDE
  4. CALCIUM CITRATE [Concomitant]
     Active Substance: CALCIUM CITRATE
  5. ALENDRONATE [Concomitant]
     Active Substance: ALENDRONATE SODIUM
  6. LISINOPRIL. [Concomitant]
     Active Substance: LISINOPRIL
  7. ASCORBATE CALCIUM [Concomitant]
  8. MAGNESIUM [Concomitant]
     Active Substance: MAGNESIUM
  9. CEFTRIAXONE. [Concomitant]
     Active Substance: CEFTRIAXONE
  10. HEPARIN [Suspect]
     Active Substance: HEPARIN SODIUM
     Route: 042
     Dates: start: 20171026, end: 20171026
  11. ATORVASTATIN [Concomitant]
     Active Substance: ATORVASTATIN
  12. AMPICILLIN-SULBACTAM [Concomitant]
     Active Substance: AMPICILLIN SODIUM\SULBACTAM SODIUM
  13. FLUCONAZOLE. [Concomitant]
     Active Substance: FLUCONAZOLE
  14. VANCOMYCIN [Concomitant]
     Active Substance: VANCOMYCIN
  15. CHOLECALCIFEROL VIT D3 [Concomitant]
  16. HYDROCODONE/ACETAMINPHEN [Concomitant]

REACTIONS (1)
  - Drug ineffective [None]

NARRATIVE: CASE EVENT DATE: 20171026
